FAERS Safety Report 25773166 (Version 1)
Quarter: 2025Q3

REPORT INFORMATION
  Report Type: Spontaneous
  Country: US (occurrence: US)
  Receive Date: 20250908
  Receipt Date: 20250908
  Transmission Date: 20251021
  Serious: No
  Sender: SPRINGWORKS THERAPEUTIC
  Company Number: US-SPRINGWORKS THERAPEUTICS-SW-003208

PATIENT
  Age: 40 Year
  Sex: Female

DRUGS (2)
  1. OGSIVEO [Suspect]
     Active Substance: NIROGACESTAT HYDROBROMIDE
     Indication: Desmoid tumour
  2. OGSIVEO [Suspect]
     Active Substance: NIROGACESTAT HYDROBROMIDE

REACTIONS (3)
  - Milia [Recovered/Resolved]
  - Hidradenitis [Recovered/Resolved]
  - Drug titration [Unknown]
